FAERS Safety Report 14814764 (Version 2)
Quarter: 2018Q3

REPORT INFORMATION
  Report Type: Spontaneous
  Country: DE (occurrence: DE)
  Receive Date: 20180426
  Receipt Date: 20180914
  Transmission Date: 20181010
  Serious: No
  Sender: FDA-Public Use
  Company Number: DE-AUROBINDO-AUR-APL-2018-022067

PATIENT
  Sex: Male
  Weight: 70 kg

DRUGS (5)
  1. PIPAMPERON [Concomitant]
     Active Substance: PIPAMPERONE HYDROCHLORIDE
     Dosage: T?GLICH 2X 40 MG UND 80MG ZUR NACHT
  2. QUETIAPINE. [Suspect]
     Active Substance: QUETIAPINE
     Indication: BIPOLAR DISORDER
     Dosage: 450 MILLIGRAM, TWO TIMES A DAY
     Route: 065
  3. CARBAMAZEPIN [Interacting]
     Active Substance: CARBAMAZEPINE
     Indication: BIPOLAR DISORDER
     Route: 048
     Dates: start: 201712
  4. PIPAMPERON [Concomitant]
     Active Substance: PIPAMPERONE HYDROCHLORIDE
     Dosage: 40 MILLIGRAM, TWO TIMES A DAY
     Route: 065
  5. PIPAMPERON [Concomitant]
     Active Substance: PIPAMPERONE HYDROCHLORIDE
     Indication: BIPOLAR DISORDER
     Dosage: 80 MILLIGRAM, ONCE A DAY, 80MG ZUR NACHT
     Route: 065

REACTIONS (6)
  - Weight decreased [Not Recovered/Not Resolved]
  - Dyspepsia [Unknown]
  - Extrapyramidal disorder [Not Recovered/Not Resolved]
  - Restlessness [Not Recovered/Not Resolved]
  - Wrong technique in product usage process [Unknown]
  - Agitation [Not Recovered/Not Resolved]

NARRATIVE: CASE EVENT DATE: 201801
